FAERS Safety Report 23575949 (Version 1)
Quarter: 2024Q1

REPORT INFORMATION
  Report Type: Spontaneous
  Country: CA (occurrence: CA)
  Receive Date: 20240228
  Receipt Date: 20240228
  Transmission Date: 20240410
  Serious: Yes (Hospitalization, Other)
  Sender: FDA-Public Use
  Company Number: CA-PFIZER INC-202400048709

PATIENT
  Age: 26 Year
  Sex: Female

DRUGS (18)
  1. CLINDAMYCIN HYDROCHLORIDE [Suspect]
     Active Substance: CLINDAMYCIN HYDROCHLORIDE
     Indication: Nodule
     Dosage: UNK
  2. METRONIDAZOLE [Suspect]
     Active Substance: METRONIDAZOLE
     Dosage: 500 MG, 2X/DAY
     Route: 048
  3. DOXYCYCLINE HYCLATE [Suspect]
     Active Substance: DOXYCYCLINE HYCLATE
     Dosage: UNK
     Route: 048
  4. HYRIMOZ [Suspect]
     Active Substance: ADALIMUMAB-ADAZ
     Indication: Hidradenitis
     Dosage: 80 MG, WEEKLY
     Route: 058
  5. HYRIMOZ [Suspect]
     Active Substance: ADALIMUMAB-ADAZ
     Dosage: 40 MG, WEEKLY
     Route: 058
  6. PREDNISONE [Suspect]
     Active Substance: PREDNISONE
     Indication: Hidradenitis
     Dosage: 10 MG, 1X/DAY
     Route: 048
  7. PREDNISONE [Suspect]
     Active Substance: PREDNISONE
     Dosage: 30 MG, 1X/DAY
     Route: 048
  8. PREDNISONE [Suspect]
     Active Substance: PREDNISONE
     Dosage: 40 MG, 1X/DAY
     Route: 048
  9. PREDNISONE [Suspect]
     Active Substance: PREDNISONE
     Dosage: 20 MG, 1X/DAY
     Route: 048
  10. RIFAMPIN [Suspect]
     Active Substance: RIFAMPIN
     Dosage: 300 MG, 2X/DAY
     Route: 048
  11. MOXIFLOXACIN HYDROCHLORIDE [Suspect]
     Active Substance: MOXIFLOXACIN HYDROCHLORIDE\MOXIFLOXACIN HYDROCHLORIDE MONOHYDRATE
     Dosage: 400 MG, 1X/DAY
     Route: 048
  12. CLOBETASOL [Concomitant]
     Active Substance: CLOBETASOL
     Indication: Abscess
     Dosage: UNK, 2X/DAY
  13. DROSPIRENONE [Concomitant]
     Active Substance: DROSPIRENONE
     Dosage: 4 MG, 1X/DAY
  14. KENALOG [Concomitant]
     Active Substance: TRIAMCINOLONE ACETONIDE
     Dosage: 20 MG
     Route: 058
  15. METFORMIN [Concomitant]
     Active Substance: METFORMIN HYDROCHLORIDE
     Dosage: 500 MG, 2X/DAY
     Route: 048
  16. SEMAGLUTIDE [Concomitant]
     Active Substance: SEMAGLUTIDE
     Dosage: 0.5 MG, WEEKLY
     Route: 058
  17. SPIRONOLACTONE [Concomitant]
     Active Substance: SPIRONOLACTONE
     Dosage: 150 MG, 1X/DAY
  18. ZINC GLUCONATE [Concomitant]
     Active Substance: ZINC GLUCONATE
     Dosage: 100 MG, 1X/DAY

REACTIONS (8)
  - Abscess [Unknown]
  - Cellulitis [Unknown]
  - Depressive symptom [Unknown]
  - Drug ineffective [Unknown]
  - Idiopathic intracranial hypertension [Unknown]
  - Loss of personal independence in daily activities [Unknown]
  - Pain [Unknown]
  - Off label use [Unknown]
